FAERS Safety Report 5267114-8 (Version None)
Quarter: 2007Q1

REPORT INFORMATION
  Report Type: 
  Country: None (occurrence: None)
  Receive Date: 20070316
  Receipt Date: 20070313
  Transmission Date: 20070707
  Serious: Yes (Death)
  Sender: FDA-Public Use
  Company Number: US-PURDUE-USA_2007_0026553

PATIENT
  Sex: Male

DRUGS (2)
  1. OXYCONTIN [Suspect]
     Indication: PAIN
     Dosage: 80 MG, TID
     Route: 048
  2. OXYCODONE HCL [Suspect]
     Indication: BREAKTHROUGH PAIN
     Dosage: 20 MG/ML, UNK

REACTIONS (1)
  - OVERDOSE [None]
